FAERS Safety Report 14845290 (Version 2)
Quarter: 2018Q2

REPORT INFORMATION
  Report Type: Report from Study
  Country: None (occurrence: US)
  Receive Date: 20180504
  Receipt Date: 20180516
  Transmission Date: 20180711
  Serious: Yes (Other)
  Sender: FDA-Public Use
  Company Number: US-ABBVIE-18K-163-2339229-00

PATIENT
  Sex: Female

DRUGS (2)
  1. HUMIRA [Suspect]
     Active Substance: ADALIMUMAB
     Indication: CROHN^S DISEASE
     Route: 058
     Dates: end: 2018
  2. HUMIRA [Suspect]
     Active Substance: ADALIMUMAB
     Route: 058
     Dates: start: 20180423

REACTIONS (8)
  - Gastrointestinal oedema [Unknown]
  - Constipation [Unknown]
  - Drug effect incomplete [Unknown]
  - Weight increased [Not Recovered/Not Resolved]
  - Red blood cell count decreased [Recovering/Resolving]
  - Large intestinal obstruction [Unknown]
  - Nasopharyngitis [Unknown]
  - Crohn^s disease [Recovering/Resolving]
